FAERS Safety Report 19354615 (Version 1)
Quarter: 2021Q2

REPORT INFORMATION
  Report Type: Spontaneous
  Country: US (occurrence: US)
  Receive Date: 20210602
  Receipt Date: 20210602
  Transmission Date: 20210717
  Serious: No
  Sender: FDA-Public Use
  Company Number: US-ORGANON-O2105USA002489

PATIENT
  Age: 17 Year
  Sex: Female

DRUGS (2)
  1. NEXPLANON [Suspect]
     Active Substance: ETONOGESTREL
     Indication: POLYMENORRHOEA
     Dosage: 1 IMPLANT (REPORTED AS ^68 MG^), ONCE
     Route: 059
     Dates: start: 201904
  2. NEXPLANON [Suspect]
     Active Substance: ETONOGESTREL
     Indication: HEAVY MENSTRUAL BLEEDING

REACTIONS (2)
  - Menstrual disorder [Unknown]
  - Product use in unapproved indication [Unknown]

NARRATIVE: CASE EVENT DATE: 202104
